FAERS Safety Report 5772952-9 (Version None)
Quarter: 2008Q2

REPORT INFORMATION
  Report Type: 
  Country: None (occurrence: None)
  Receive Date: 20080613
  Receipt Date: 20080603
  Transmission Date: 20081010
  Serious: Yes (Hospitalization, Other)
  Sender: FDA-Public Use
  Company Number: US-PFIZER INC-2008047505

PATIENT
  Sex: Female

DRUGS (7)
  1. BEXTRA [Suspect]
     Indication: PAIN
  2. NAPROSYN [Concomitant]
     Indication: PAIN
  3. TEGRETOL [Concomitant]
     Indication: TRIGEMINAL NEURALGIA
  4. AUGMENTIN '125' [Concomitant]
     Indication: PHARYNGOLARYNGEAL PAIN
  5. ACETAMINOPHEN [Concomitant]
  6. TRIAMCINOLONE ACETONIDE [Concomitant]
     Route: 061
  7. TYLENOL W/ CODEINE [Concomitant]

REACTIONS (1)
  - STEVENS-JOHNSON SYNDROME [None]
